FAERS Safety Report 6085838-X (Version None)
Quarter: 2009Q1

REPORT INFORMATION
  Report Type: 
  Country: None (occurrence: None)
  Receive Date: 20090220
  Receipt Date: 20090213
  Transmission Date: 20090719
  Serious: Yes (Other)
  Sender: FDA-Public Use
  Company Number: B0529663A

PATIENT
  Age: 63 Year
  Sex: Male

DRUGS (6)
  1. COMBIVIR [Suspect]
     Indication: HIV INFECTION
     Dosage: 1TAB TWICE PER DAY
     Route: 048
     Dates: start: 20031103, end: 20071218
  2. TENOFOVIR [Suspect]
     Indication: HIV INFECTION
     Dosage: 300MG TWICE PER DAY
     Route: 048
     Dates: start: 20031103, end: 20071218
  3. COTRIMOXAZOLE [Concomitant]
     Dosage: 960MG PER DAY
     Dates: start: 20031117
  4. NEVIRAPINE [Concomitant]
     Dates: start: 20071218
  5. KALETRA [Concomitant]
  6. DIDANOSINE [Concomitant]
     Dates: start: 20071218

REACTIONS (5)
  - EYES SUNKEN [None]
  - ILL-DEFINED DISORDER [None]
  - LIPOATROPHY [None]
  - MUSCLE ATROPHY [None]
  - WEIGHT DECREASED [None]
